FAERS Safety Report 9564961 (Version 2)
Quarter: 2013Q4

REPORT INFORMATION
  Report Type: Report from Study
  Country: AU (occurrence: AU)
  Receive Date: 20130930
  Receipt Date: 20131007
  Transmission Date: 20140711
  Serious: Yes (Other)
  Sender: FDA-Public Use
  Company Number: PHHY2013AU108579

PATIENT
  Sex: Female

DRUGS (6)
  1. ACLASTA [Suspect]
     Dosage: 5 MG, UNK
     Route: 042
     Dates: start: 20100825
  2. ACLASTA [Suspect]
     Dosage: 5 MG, UNK
     Route: 042
     Dates: start: 20110902
  3. ACLASTA [Suspect]
     Dosage: 5 MG, UNK
     Route: 042
     Dates: start: 20120830
  4. CLEXANE [Concomitant]
     Indication: EMBOLISM ARTERIAL
     Dosage: 40 MG, UNK
     Route: 058
  5. NORSPAN//BUPRENORPHINE [Concomitant]
     Indication: PAIN
     Dosage: 10 MG, UNK
  6. RISPA [Concomitant]
     Indication: DEMENTIA
     Dosage: 0.5 MG, UNK
     Route: 048

REACTIONS (3)
  - Tibia fracture [Recovering/Resolving]
  - Pathological fracture [Recovering/Resolving]
  - Weight bearing difficulty [Recovering/Resolving]
